FAERS Safety Report 9808974 (Version 1)
Quarter: 2014Q1

REPORT INFORMATION
  Report Type: Spontaneous
  Country: GB (occurrence: GB)
  Receive Date: 20140110
  Receipt Date: 20140110
  Transmission Date: 20141002
  Serious: Yes (Hospitalization, Disabling, Other)
  Sender: FDA-Public Use
  Company Number: GB-ABBVIE-14P-167-1188513-00

PATIENT
  Age: 66 Year
  Sex: Male
  Weight: 76 kg

DRUGS (12)
  1. CLARITHROMYCIN [Suspect]
     Indication: MYCOBACTERIUM AVIUM COMPLEX INFECTION
     Route: 048
     Dates: start: 20130722, end: 20131114
  2. CLARITHROMYCIN [Suspect]
     Indication: LUNG INFECTION
     Dates: start: 2009
  3. CLARITHROMYCIN [Suspect]
     Indication: BRONCHIECTASIS
  4. ETHAMBUTOL [Suspect]
     Indication: MYCOBACTERIUM AVIUM COMPLEX INFECTION
     Route: 048
     Dates: start: 20130722, end: 20131114
  5. ETHAMBUTOL [Suspect]
     Indication: LUNG INFECTION
     Dates: start: 2009
  6. ETHAMBUTOL [Suspect]
     Indication: BRONCHIECTASIS
  7. GENTAMICIN [Suspect]
     Indication: MYCOBACTERIUM AVIUM COMPLEX INFECTION
     Dosage: NEBULISED FORM; 240 MG
     Route: 048
     Dates: start: 20130722, end: 20131114
  8. GENTAMICIN [Suspect]
     Indication: LUNG INFECTION
  9. GENTAMICIN [Suspect]
     Indication: BRONCHIECTASIS
  10. COTRIMOXAZOLE [Suspect]
     Indication: MYCOBACTERIUM AVIUM COMPLEX INFECTION
     Route: 048
     Dates: start: 20130722, end: 20131114
  11. COTRIMOXAZOLE [Suspect]
     Indication: LUNG INFECTION
  12. COTRIMOXAZOLE [Suspect]
     Indication: BRONCHIECTASIS

REACTIONS (8)
  - Ear discomfort [Recovered/Resolved with Sequelae]
  - Vertigo [Recovered/Resolved with Sequelae]
  - Dizziness [Recovered/Resolved with Sequelae]
  - Headache [Recovered/Resolved with Sequelae]
  - Tinnitus [Recovered/Resolved with Sequelae]
  - Palpitations [Recovered/Resolved]
  - Nausea [Recovered/Resolved with Sequelae]
  - Asthenia [Unknown]
